FAERS Safety Report 24593067 (Version 1)
Quarter: 2024Q4

REPORT INFORMATION
  Report Type: Spontaneous
  Country: UA (occurrence: UA)
  Receive Date: 20241108
  Receipt Date: 20241108
  Transmission Date: 20250115
  Serious: Yes (Death)
  Sender: MYLAN
  Company Number: UA-MYLANLABS-2024M1100040

PATIENT
  Age: 55 Year
  Sex: Male

DRUGS (4)
  1. PRETOMANID [Suspect]
     Active Substance: PRETOMANID
     Indication: Tuberculosis
     Dosage: 200 MILLIGRAM, QD
     Route: 048
     Dates: start: 20240909, end: 20241001
  2. LINEZOLID [Suspect]
     Active Substance: LINEZOLID
     Indication: Tuberculosis
     Dosage: 600 MILLIGRAM, QD
     Route: 048
     Dates: start: 20240909, end: 20241001
  3. BEDAQUILINE [Suspect]
     Active Substance: BEDAQUILINE
     Indication: Tuberculosis
     Dosage: 400 MILLIGRAM, QD
     Route: 048
     Dates: start: 20240909, end: 20240922
  4. BEDAQUILINE [Suspect]
     Active Substance: BEDAQUILINE
     Dosage: 200 MILLIGRAM, 3XW
     Route: 048
     Dates: start: 20240922, end: 20241001

REACTIONS (1)
  - Death [Fatal]

NARRATIVE: CASE EVENT DATE: 20241012
